FAERS Safety Report 5281784-X (Version None)
Quarter: 2007Q1

REPORT INFORMATION
  Report Type: 
  Country: None (occurrence: None)
  Receive Date: 20070330
  Receipt Date: 20070327
  Transmission Date: 20070707
  Serious: Yes (Other)
  Sender: FDA-Public Use
  Company Number: 2007-541

PATIENT
  Age: 51 Year
  Sex: Female

DRUGS (2)
  1. AMOCLAV [Suspect]
     Dosage: 625MG THREE TIMES PER DAY
     Route: 048
  2. LEVOTHYROXINE SODIUM [Concomitant]
     Route: 048

REACTIONS (2)
  - AGGRESSION [None]
  - RESTLESSNESS [None]
